FAERS Safety Report 6101054-7 (Version None)
Quarter: 2009Q1

REPORT INFORMATION
  Report Type: 
  Country: None (occurrence: None)
  Receive Date: 20090304
  Receipt Date: 20090224
  Transmission Date: 20090719
  Serious: Yes (Other)
  Sender: FDA-Public Use
  Company Number: AU-AMGEN-US336537

PATIENT
  Sex: Male

DRUGS (3)
  1. ENBREL [Suspect]
     Indication: RHEUMATOID ARTHRITIS
     Dosage: UNKNOWN
  2. ENBREL [Suspect]
     Indication: ANKYLOSING SPONDYLITIS
  3. METHOTREXATE [Suspect]
     Dosage: UNKNOWN

REACTIONS (5)
  - EPSTEIN-BARR VIRUS INFECTION [None]
  - HEPATITIS [None]
  - NEUTROPENIA [None]
  - PYREXIA [None]
  - SPLENIC INFARCTION [None]
